FAERS Safety Report 5208422-6 (Version None)
Quarter: 2006Q4

REPORT INFORMATION
  Report Type: 
  Country: None (occurrence: None)
  Receive Date: 20061026
  Receipt Date: 20060810
  Transmission Date: 20070319
  Serious: No
  Sender: FDA-Public Use
  Company Number: 2006098778

PATIENT
  Age: 73 Year
  Sex: Male

DRUGS (2)
  1. LYRICA [Suspect]
     Dosage: 300 MG (150 MG, 2 IN 1 D)
  2. WARFARIN SODIUM [Concomitant]

REACTIONS (1)
  - INTERNATIONAL NORMALISED RATIO INCREASED [None]
